FAERS Safety Report 15668235 (Version 1)
Quarter: 2018Q4

REPORT INFORMATION
  Report Type: Spontaneous
  Country: US (occurrence: US)
  Receive Date: 20181129
  Receipt Date: 20181129
  Transmission Date: 20190205
  Serious: Yes (Hospitalization, Other)
  Sender: FDA-Public Use
  Company Number: US-BRISTOL-MYERS SQUIBB COMPANY-BMS-2018-107526

PATIENT
  Sex: Male

DRUGS (1)
  1. YERVOY [Suspect]
     Active Substance: IPILIMUMAB
     Indication: MALIGNANT MELANOMA
     Dosage: 10 MG/KG, Q3MO
     Route: 042
     Dates: start: 2015

REACTIONS (6)
  - Myocarditis [Unknown]
  - Atrial fibrillation [Unknown]
  - Troponin increased [Unknown]
  - Colitis [Unknown]
  - Product use in unapproved indication [Unknown]
  - Off label use [Unknown]
